FAERS Safety Report 12278623 (Version 4)
Quarter: 2018Q3

REPORT INFORMATION
  Report Type: Spontaneous
  Country: US (occurrence: US)
  Receive Date: 20160418
  Receipt Date: 20180910
  Transmission Date: 20181010
  Serious: No
  Sender: FDA-Public Use
  Company Number: US-PFIZER INC-2015437231

PATIENT
  Age: 76 Year
  Sex: Female

DRUGS (1)
  1. LYRICA [Suspect]
     Active Substance: PREGABALIN
     Indication: FIBROMYALGIA
     Dosage: 200 MG, 2X/DAY
     Route: 048

REACTIONS (4)
  - Urticaria [Unknown]
  - Intentional product misuse [Unknown]
  - Pain of skin [Unknown]
  - Neuralgia [Unknown]
